FAERS Safety Report 7607983-7 (Version None)
Quarter: 2011Q3

REPORT INFORMATION
  Report Type: 
  Country: None (occurrence: None)
  Receive Date: 20110714
  Receipt Date: 20110706
  Transmission Date: 20111222
  Serious: No
  Sender: FDA-Public Use
  Company Number: US-PFIZER INC-2011152117

PATIENT
  Sex: Female
  Weight: 97.506 kg

DRUGS (3)
  1. LATANOPROST [Suspect]
     Indication: GLAUCOMA
     Dosage: 1 GTT, 1X/DAY IN LEFT EYE (EVENING)
     Route: 047
     Dates: start: 20110601
  2. LISINOPRIL [Concomitant]
     Indication: HYPERTENSION
     Dosage: 10 MG, DAILY
     Route: 048
  3. XALATAN [Concomitant]
     Indication: GLAUCOMA
     Dosage: UNK
     Route: 047
     Dates: end: 20110601

REACTIONS (1)
  - OCULAR HYPERAEMIA [None]
